FAERS Safety Report 11552620 (Version 1)
Quarter: 2015Q3

REPORT INFORMATION
  Report Type: Spontaneous
  Country: US (occurrence: None)
  Receive Date: 20150924
  Receipt Date: 20150924
  Transmission Date: 20151125
  Serious: Yes (Death, Hospitalization)
  Sender: FDA-Public Use
  Company Number: None

PATIENT
  Age: 3 Year
  Sex: Female
  Weight: 13.26 kg

DRUGS (9)
  1. DOXORUBICIN HYDROCHLORIDE. [Suspect]
     Active Substance: DOXORUBICIN HYDROCHLORIDE
     Dates: end: 20150817
  2. METHOTREXATE [Suspect]
     Active Substance: METHOTREXATE
     Dates: end: 20150831
  3. ONCASPAR [Suspect]
     Active Substance: PEGASPARGASE
     Dates: end: 20150806
  4. LEUCOVORIN CALCIUM. [Suspect]
     Active Substance: LEUCOVORIN CALCIUM
     Dates: end: 20150903
  5. THIOGUANINE (6-TG) [Suspect]
     Active Substance: THIOGUANINE
     Dates: end: 20150913
  6. VINCRISTINE [Suspect]
     Active Substance: VINCRISTINE
     Dates: start: 20150817
  7. CYCLOPHOSPHAMIDE. [Suspect]
     Active Substance: CYCLOPHOSPHAMIDE
     Dates: end: 20150831
  8. CYTARABINE. [Suspect]
     Active Substance: CYTARABINE
     Dates: end: 20150910
  9. DEXAMETHASONE. [Suspect]
     Active Substance: DEXAMETHASONE
     Dates: end: 20150823

REACTIONS (10)
  - Bacterial test positive [None]
  - Tachypnoea [None]
  - Vomiting [None]
  - Blood potassium increased [None]
  - Anaemia [None]
  - Unresponsive to stimuli [None]
  - Bradycardia [None]
  - Depressed level of consciousness [None]
  - Acidosis [None]
  - Hypotension [None]

NARRATIVE: CASE EVENT DATE: 20150916
